FAERS Safety Report 24708466 (Version 4)
Quarter: 2025Q1

REPORT INFORMATION
  Report Type: Report from Study
  Country: ZA (occurrence: ZA)
  Receive Date: 20241207
  Receipt Date: 20250124
  Transmission Date: 20250409
  Serious: Yes (Congenital Anomaly, Other)
  Sender: HETERO
  Company Number: ZA-HETERO-HET2024ZA04435

PATIENT
  Sex: Female
  Weight: 3.4 kg

DRUGS (5)
  1. DOLUTEGRAVIR\LAMIVUDINE\TENOFOVIR DISOPROXIL FUMARATE [Suspect]
     Active Substance: DOLUTEGRAVIR\LAMIVUDINE\TENOFOVIR DISOPROXIL FUMARATE
     Indication: HIV infection
     Route: 064
  2. METRONIDAZOLE [Suspect]
     Active Substance: METRONIDAZOLE
     Indication: Antibiotic therapy
     Route: 064
  3. CEFTRIAXONE [Suspect]
     Active Substance: CEFTRIAXONE
     Indication: Antibiotic therapy
     Route: 064
  4. BICILLIN [Suspect]
     Active Substance: PENICILLIN G BENZATHINE
     Indication: Antibiotic therapy
     Route: 064
  5. AZITHROMYCIN [Suspect]
     Active Substance: AZITHROMYCIN
     Indication: Product used for unknown indication
     Route: 064

REACTIONS (2)
  - Congenital umbilical hernia [Unknown]
  - Foetal exposure during pregnancy [Unknown]
